FAERS Safety Report 19243672 (Version 1)
Quarter: 2021Q2

REPORT INFORMATION
  Report Type: Spontaneous
  Country: JP (occurrence: JP)
  Receive Date: 20210511
  Receipt Date: 20210511
  Transmission Date: 20210717
  Serious: Yes (Death, Hospitalization, Other)
  Sender: FDA-Public Use
  Company Number: PHHY2014JP176599

PATIENT
  Age: 63 Year
  Sex: Female

DRUGS (14)
  1. BISOLVON [Concomitant]
     Active Substance: BROMHEXINE HYDROCHLORIDE
     Indication: PRODUCTIVE COUGH
  2. OXYCONTIN [Concomitant]
     Active Substance: OXYCODONE HYDROCHLORIDE
     Indication: DYSPNOEA
     Dosage: 5 MG, BID
     Route: 065
     Dates: start: 20131010
  3. GASTER [Concomitant]
     Active Substance: FAMOTIDINE
     Indication: ABDOMINAL PAIN UPPER
     Dosage: 10 MG, BID
     Route: 065
     Dates: start: 20131023
  4. MUCOSTA [Concomitant]
     Active Substance: REBAMIPIDE
     Indication: NAUSEA
     Dosage: 100 MG, TID
     Route: 065
     Dates: start: 20131010
  5. PRIMPERAN [Concomitant]
     Active Substance: METOCLOPRAMIDE HYDROCHLORIDE
     Indication: NAUSEA
     Dosage: 5 MG, TID
     Route: 065
     Dates: start: 20131029
  6. VOTRIENT [Suspect]
     Active Substance: PAZOPANIB HYDROCHLORIDE
     Dosage: 200 MG, QD
     Route: 048
     Dates: start: 2014
  7. ASTOMIN [Concomitant]
     Indication: COUGH
     Dosage: 20 MG, TID
     Route: 065
     Dates: start: 20130812
  8. ASTOMIN [Concomitant]
     Indication: PRODUCTIVE COUGH
  9. VOTRIENT [Suspect]
     Active Substance: PAZOPANIB HYDROCHLORIDE
     Indication: SOFT TISSUE SARCOMA
     Dosage: 800 MG, QD
     Route: 048
     Dates: start: 20131023, end: 20131202
  10. PRIMPERAN [Concomitant]
     Active Substance: METOCLOPRAMIDE HYDROCHLORIDE
     Indication: ABDOMINAL PAIN UPPER
  11. MALFA [Concomitant]
     Active Substance: ALUMINUM HYDROXIDE\MAGNESIUM HYDROXIDE
     Indication: NAUSEA
     Dosage: 10 ML, TID
     Route: 065
     Dates: start: 20131029
  12. BISOLVON [Concomitant]
     Active Substance: BROMHEXINE HYDROCHLORIDE
     Indication: COUGH
     Dosage: 4 MG, TID
     Route: 065
     Dates: start: 20130812
  13. TRAVELMIN [Concomitant]
     Indication: NAUSEA
     Dosage: 1 DF, TID
     Route: 065
     Dates: start: 20131010
  14. MALFA [Concomitant]
     Active Substance: ALUMINUM HYDROXIDE\MAGNESIUM HYDROXIDE
     Indication: ABDOMINAL PAIN UPPER

REACTIONS (8)
  - Thyroid disorder [Recovering/Resolving]
  - Metastases to pleura [Fatal]
  - Hypothyroidism [Unknown]
  - Concomitant disease aggravated [Fatal]
  - Respiratory failure [Fatal]
  - Thyroiditis [Recovering/Resolving]
  - Hepatic function abnormal [Recovering/Resolving]
  - Hyperthyroidism [Recovering/Resolving]

NARRATIVE: CASE EVENT DATE: 20131125
